FAERS Safety Report 5699251-8 (Version None)
Quarter: 2008Q2

REPORT INFORMATION
  Report Type: 
  Country: None (occurrence: None)
  Receive Date: 20080407
  Receipt Date: 20080407
  Transmission Date: 20081010
  Serious: Yes (Other)
  Sender: FDA-Public Use
  Company Number: None

PATIENT
  Sex: Female
  Weight: 58.9676 kg

DRUGS (1)
  1. SERTRALINE HCL [Suspect]
     Indication: DEPRESSION
     Dosage: 75MG QD BUCCAL
     Route: 002

REACTIONS (7)
  - DYSSTASIA [None]
  - IMPAIRED WORK ABILITY [None]
  - NAUSEA [None]
  - NYSTAGMUS [None]
  - TINNITUS [None]
  - VERTIGO [None]
  - VOMITING [None]
